FAERS Safety Report 17848731 (Version 2)
Quarter: 2021Q1

REPORT INFORMATION
  Report Type: Spontaneous
  Country: GB (occurrence: GB)
  Receive Date: 20200602
  Receipt Date: 20210306
  Transmission Date: 20210419
  Serious: Yes (Hospitalization)
  Sender: FDA-Public Use
  Company Number: PHHY2018GB115773

PATIENT
  Age: 49 Year
  Sex: Female

DRUGS (40)
  1. NYSTATIN. [Concomitant]
     Active Substance: NYSTATIN
     Indication: PRODUCT USED FOR UNKNOWN INDICATION
     Dosage: UNK, QD (1000 UNIT)
     Route: 048
     Dates: start: 20170904, end: 20170919
  2. DEXAMETHASONE. [Concomitant]
     Active Substance: DEXAMETHASONE
     Indication: PROPHYLAXIS
     Dosage: 8 MG,0.5
     Route: 048
     Dates: start: 20151210, end: 20160222
  3. DEXAMETHASONE. [Concomitant]
     Active Substance: DEXAMETHASONE
     Dosage: 4 MG
     Route: 048
     Dates: start: 20170809, end: 20170919
  4. CALCICHEW [Concomitant]
     Active Substance: CALCIUM CARBONATE
     Indication: PRODUCT USED FOR UNKNOWN INDICATION
     Dosage: UNK
     Route: 065
     Dates: start: 20151231, end: 20170919
  5. TRASTUZUMAB. [Suspect]
     Active Substance: TRASTUZUMAB
     Indication: HER2 POSITIVE BREAST CANCER
     Dosage: 525 MG, TIW (LOADING DOSE)
     Route: 042
     Dates: start: 20151023, end: 20151023
  6. HYDROCORTISONE. [Concomitant]
     Active Substance: HYDROCORTISONE
     Indication: PROPHYLAXIS
     Dosage: 100 MG,0.33
     Route: 042
     Dates: start: 20151022, end: 20160222
  7. HALOPERIDOL. [Concomitant]
     Active Substance: HALOPERIDOL
     Indication: PRODUCT USED FOR UNKNOWN INDICATION
     Dosage: 1.5 MG,0.5
     Route: 048
     Dates: start: 20170810, end: 20170909
  8. DOMPERIDONE [Concomitant]
     Active Substance: DOMPERIDONE
     Indication: PRODUCT USED FOR UNKNOWN INDICATION
     Dosage: 10 MG,0.5
     Route: 048
     Dates: start: 20170810, end: 20170919
  9. CLOTRIMAZOLE. [Concomitant]
     Active Substance: CLOTRIMAZOLE
     Indication: PRODUCT USED FOR UNKNOWN INDICATION
     Dosage: 1 %
     Route: 061
     Dates: start: 20170918, end: 20170920
  10. MICONAZOLE. [Concomitant]
     Active Substance: MICONAZOLE
     Indication: PRODUCT USED FOR UNKNOWN INDICATION
     Dosage: 20MG
     Route: 048
     Dates: start: 20170918, end: 20170920
  11. TRASTUZUMAB. [Suspect]
     Active Substance: TRASTUZUMAB
     Dosage: 200 MG, TIW
     Route: 042
     Dates: start: 20170330, end: 20170608
  12. CLOTRIMAZOLE. [Concomitant]
     Active Substance: CLOTRIMAZOLE
     Dosage: UNK,0.33
     Route: 061
     Dates: start: 20170918, end: 20170920
  13. DEXAMETHASONE. [Concomitant]
     Active Substance: DEXAMETHASONE
     Dosage: 8 MG
     Route: 048
     Dates: start: 20170803, end: 20170809
  14. CHLORAMPHENICOL [Concomitant]
     Active Substance: CHLORAMPHENICOL
     Dosage: UNK
     Route: 065
     Dates: start: 20170918, end: 20170920
  15. CALCICHEW D3 FORTE [Concomitant]
     Active Substance: CALCIUM\CHOLECALCIFEROL
     Indication: HYPOCALCAEMIA
     Dosage: UNK
     Route: 048
     Dates: start: 20151231, end: 20170919
  16. TRIMETHOPRIM. [Concomitant]
     Active Substance: TRIMETHOPRIM
     Indication: PRODUCT USED FOR UNKNOWN INDICATION
     Dosage: 50MG
     Route: 065
     Dates: start: 20170915, end: 20170919
  17. ZOLEDRONIC ACID [Concomitant]
     Active Substance: ZOLEDRONIC ACID
     Indication: PRODUCT USED FOR UNKNOWN INDICATION
     Dosage: 4 MG
     Route: 042
     Dates: start: 20151022, end: 20170713
  18. MORPHINE SULPHATE [Concomitant]
     Active Substance: MORPHINE SULFATE
     Indication: PRODUCT USED FOR UNKNOWN INDICATION
     Dosage: 2.5MG
     Route: 048
     Dates: start: 20170918, end: 20170920
  19. DOCETAXEL. [Suspect]
     Active Substance: DOCETAXEL
     Indication: HER2 POSITIVE BREAST CANCER
     Dosage: 132 MG, TIW (LOADING DOSE)
     Route: 042
     Dates: start: 20151022, end: 20151022
  20. PERTUZUMAB. [Suspect]
     Active Substance: PERTUZUMAB
     Indication: HER2 POSITIVE BREAST CANCER
     Dosage: LOADING DOSE
     Route: 042
     Dates: start: 20151023, end: 20151023
  21. MIGRALEVE [Concomitant]
     Active Substance: ACETAMINOPHEN\BUCLIZINE HYDROCHLORIDE\CODEINE
     Indication: PRODUCT USED FOR UNKNOWN INDICATION
     Dosage: UNK, PRN
     Route: 048
     Dates: start: 2017
  22. HALOPERIDOL. [Concomitant]
     Active Substance: HALOPERIDOL
     Dosage: 1.5MG
     Route: 058
     Dates: start: 20170919, end: 20170920
  23. CHLORAMPHENICOL [Concomitant]
     Active Substance: CHLORAMPHENICOL
     Indication: PRODUCT USED FOR UNKNOWN INDICATION
     Dosage: 1 %
     Route: 047
     Dates: start: 20170918, end: 20170920
  24. FILGRASTIM [Concomitant]
     Active Substance: FILGRASTIM
     Indication: PRODUCT USED FOR UNKNOWN INDICATION
     Dosage: 300 UG, QD
     Route: 058
     Dates: start: 20151120, end: 20151127
  25. FILGRASTIM [Concomitant]
     Active Substance: FILGRASTIM
     Dosage: 300 MG, QD (QD FOR SEVEN DAYS FROM DAY 4 OF CYCLE)
     Route: 058
     Dates: start: 20151210, end: 20160305
  26. LETROZOLE. [Suspect]
     Active Substance: LETROZOLE
     Indication: HER2 POSITIVE BREAST CANCER
     Dosage: 2.5 MG, QD
     Route: 048
     Dates: start: 20160308
  27. DOCETAXEL. [Suspect]
     Active Substance: DOCETAXEL
     Indication: BREAST CANCER
     Dosage: 108 MG, TIW (PLANNED NUMBER OF CYCLES COMPLETED)
     Route: 042
     Dates: start: 20151120
  28. TRASTUZUMAB. [Suspect]
     Active Substance: TRASTUZUMAB
     Dosage: 240 MG, TIW
     Route: 042
     Dates: start: 20161201, end: 20170302
  29. DEXAMETHASONE. [Concomitant]
     Active Substance: DEXAMETHASONE
     Dosage: 2 MG
     Route: 048
     Dates: start: 20170728, end: 20170803
  30. TRASTUZUMAB. [Suspect]
     Active Substance: TRASTUZUMAB
     Indication: BREAST CANCER
     Dosage: 400 MG, TIW (MAINTAINANCE DOSE)
     Route: 042
     Dates: start: 20151120, end: 20151120
  31. PERTUZUMAB. [Suspect]
     Active Substance: PERTUZUMAB
     Indication: BREAST CANCER
     Dosage: 420 MG, TIW (MAINTAINANCE DOSE)
     Route: 042
     Dates: start: 20151120, end: 20151120
  32. ZOPICLONE [Concomitant]
     Active Substance: ZOPICLONE
     Indication: PRODUCT USED FOR UNKNOWN INDICATION
     Dosage: 3.75 MG
     Route: 048
     Dates: start: 20170825, end: 20170919
  33. ZOPICLONE [Concomitant]
     Active Substance: ZOPICLONE
     Dosage: UNK
     Route: 065
  34. MIDAZOLAM. [Concomitant]
     Active Substance: MIDAZOLAM
     Indication: PRODUCT USED FOR UNKNOWN INDICATION
     Dosage: 2.5MG
     Route: 058
     Dates: start: 20170918, end: 20170920
  35. CHLORPHENAMINE [Concomitant]
     Active Substance: CHLORPHENIRAMINE MALEATE
     Indication: PROPHYLAXIS
     Dosage: 100 MG, QW
     Route: 042
     Dates: start: 20151022, end: 20160222
  36. ONDANSETRON [Concomitant]
     Active Substance: ONDANSETRON
     Indication: PRODUCT USED FOR UNKNOWN INDICATION
     Dosage: 8 MG,0.5
     Route: 048
     Dates: start: 20170809, end: 20170812
  37. LETROZOLE. [Suspect]
     Active Substance: LETROZOLE
     Indication: BREAST CANCER
  38. LANSOPRAZOLE. [Concomitant]
     Active Substance: LANSOPRAZOLE
     Indication: PROPHYLAXIS
     Dosage: 30 MG
     Route: 048
     Dates: start: 20170728, end: 20170905
  39. NYSTATIN. [Concomitant]
     Active Substance: NYSTATIN
     Dosage: UNK,0.25
     Route: 048
     Dates: start: 20170904, end: 20170919
  40. GLYCOPYRRONIUM [Concomitant]
     Active Substance: GLYCOPYRRONIUM
     Indication: PRODUCT USED FOR UNKNOWN INDICATION
     Dosage: 400UG
     Route: 058
     Dates: start: 20170919, end: 20170920

REACTIONS (3)
  - Neuropathy peripheral [Recovered/Resolved]
  - Insomnia [Recovered/Resolved]
  - Hydronephrosis [Recovered/Resolved]

NARRATIVE: CASE EVENT DATE: 20161109
